FAERS Safety Report 5906411 (Version 7)
Quarter: 2012Q4

REPORT INFORMATION
  Report Type: 
  Country: CA (occurrence: CA)
  Receive Date: 20051021
  Receipt Date: 20121022
  Transmission Date: 20130627
  Serious: Yes (Other)
  Sender: FDA-Public Use
  Company Number: PHHO2005CA16302

PATIENT
  Sex: Female

DRUGS (7)
  1. ZOMETA [Suspect]
     Indication: BREAST CANCER
     Dosage: 4 mg once monthly
     Route: 042
     Dates: start: 20050821
  2. CALCIUM [Concomitant]
  3. VITAMIN D [Concomitant]
  4. XELODA [Concomitant]
  5. PAMIDRONATE [Concomitant]
  6. HYDROMORPHONE [Concomitant]
  7. ANALGESICS [Concomitant]

REACTIONS (6)
  - Mastication disorder [Unknown]
  - Metastases to bone [Unknown]
  - Metastases to central nervous system [Unknown]
  - Blood pressure decreased [Unknown]
  - Nausea [Unknown]
  - Dizziness [Unknown]
